FAERS Safety Report 7219269-3 (Version None)
Quarter: 2011Q1

REPORT INFORMATION
  Report Type: 
  Country: None (occurrence: None)
  Receive Date: 20110111
  Receipt Date: 20100127
  Transmission Date: 20110831
  Serious: No
  Sender: FDA-Public Use
  Company Number: US-PFIZER INC-2010012424

PATIENT
  Sex: Female

DRUGS (1)
  1. ATGAM [Suspect]
     Indication: LEUKAEMIA
     Dosage: 4800 MG, 1X/DAY
     Route: 042
     Dates: start: 20100126

REACTIONS (1)
  - CHILLS [None]
